FAERS Safety Report 19739727 (Version 1)
Quarter: 2021Q3

REPORT INFORMATION
  Report Type: Spontaneous
  Country: SE (occurrence: SE)
  Receive Date: 20210824
  Receipt Date: 20210824
  Transmission Date: 20211014
  Serious: Yes (Life-Threatening, Other)
  Sender: FDA-Public Use
  Company Number: SE-MYLANLABS-2021M1053691

PATIENT
  Age: 84 Year
  Sex: Female

DRUGS (3)
  1. METOPROLOL. [Suspect]
     Active Substance: METOPROLOL
     Indication: TACHYCARDIA
     Dosage: UNK
  2. METOTAB [Suspect]
     Active Substance: METHOTREXATE SODIUM
     Indication: POLYMYALGIA RHEUMATICA
     Dosage: PROBABLY 1/DAY SINCE NOVEMBER 2020 AND
     Route: 048
     Dates: start: 202011
  3. METOPROLOL. [Suspect]
     Active Substance: METOPROLOL
     Indication: HYPERTENSION
     Dosage: UNK (50 MG 2/DAG, SE NARRATIV)
     Route: 048
     Dates: start: 20201119

REACTIONS (10)
  - Wrong product administered [Recovered/Resolved]
  - Dysphagia [Recovered/Resolved]
  - Renal impairment [Recovered/Resolved]
  - Product name confusion [Recovered/Resolved]
  - Diarrhoea [Recovered/Resolved]
  - Fatigue [Recovered/Resolved]
  - Pyrexia [Recovered/Resolved]
  - Mucosal inflammation [Recovered/Resolved]
  - Accidental overdose [Recovered/Resolved]
  - Myelosuppression [Recovered/Resolved]

NARRATIVE: CASE EVENT DATE: 202101
